FAERS Safety Report 8045070-7 (Version None)
Quarter: 2012Q1

REPORT INFORMATION
  Report Type: 
  Country: None (occurrence: None)
  Receive Date: 20120113
  Receipt Date: 20120110
  Transmission Date: 20120608
  Serious: Yes (Death, Other)
  Sender: FDA-Public Use
  Company Number: PHHY2011JP66452

PATIENT
  Age: 75 Year
  Sex: Male

DRUGS (4)
  1. CYCLOSPORINE [Suspect]
     Indication: APLASTIC ANAEMIA
     Dosage: UNK UKN, UNK
     Dates: start: 20090101
  2. ANTI-THYMOCYTE GLOBULIN RABBIT NOS [Suspect]
     Indication: APLASTIC ANAEMIA
     Dosage: UNK UKN, UNK
     Dates: start: 20090101
  3. METHYLPREDNISOLONE [Concomitant]
     Dosage: 125 MG, DAILY
  4. PREDNISOLONE [Concomitant]
     Dosage: 60 MG,DAILY

REACTIONS (14)
  - MULTI-ORGAN FAILURE [None]
  - RESPIRATORY FAILURE [None]
  - ENCEPHALITIS VIRAL [None]
  - CYTOMEGALOVIRUS INFECTION [None]
  - POST TRANSPLANT LYMPHOPROLIFERATIVE DISORDER [None]
  - LYMPHADENOPATHY [None]
  - EPSTEIN-BARR VIRUS INFECTION [None]
  - LACTIC ACIDOSIS [None]
  - HEPATIC FUNCTION ABNORMAL [None]
  - ALTERED STATE OF CONSCIOUSNESS [None]
  - LYMPHOPENIA [None]
  - PYREXIA [None]
  - HEPATOMEGALY [None]
  - LYMPHOCYTE MORPHOLOGY ABNORMAL [None]
